FAERS Safety Report 17204276 (Version 1)
Quarter: 2019Q4

REPORT INFORMATION
  Report Type: Spontaneous
  Country: PL (occurrence: PL)
  Receive Date: 20191226
  Receipt Date: 20191226
  Transmission Date: 20200122
  Serious: Yes (Other)
  Sender: FDA-Public Use
  Company Number: PL-MYLANLABS-2019M1127063

PATIENT
  Age: 57 Year
  Sex: Female

DRUGS (4)
  1. ZOLEDRONIC ACID [Suspect]
     Active Substance: ZOLEDRONIC ACID
     Indication: BREAST CANCER
     Dosage: 4 MG, UNK (EVERY 28 DAYS)
     Route: 065
     Dates: start: 20180110
  2. RIBOCICLIB. [Suspect]
     Active Substance: RIBOCICLIB
     Dosage: 400 MG, QD
     Route: 065
  3. LETROZOLE. [Suspect]
     Active Substance: LETROZOLE
     Indication: BREAST CANCER
     Dosage: 2.5 MG, QD
     Route: 065
     Dates: start: 20180110
  4. RIBOCICLIB. [Suspect]
     Active Substance: RIBOCICLIB
     Indication: BREAST CANCER
     Dosage: 600 MG, CYCLIC ( PER DAY FOR 21 DAYS, CYCLES EVERY 28 DAYS)
     Route: 065
     Dates: start: 20180110

REACTIONS (3)
  - Bone pain [Unknown]
  - Hepatomegaly [Unknown]
  - Neutropenia [Unknown]

NARRATIVE: CASE EVENT DATE: 20190731
